FAERS Safety Report 20382642 (Version 2)
Quarter: 2022Q1

REPORT INFORMATION
  Report Type: Spontaneous
  Country: US (occurrence: US)
  Receive Date: 20220127
  Receipt Date: 20220311
  Transmission Date: 20220424
  Serious: Yes (Life-Threatening, Other)
  Sender: FDA-Public Use
  Company Number: US-PFIZER INC-202200118629

PATIENT
  Age: 9 Year
  Sex: Male
  Weight: 38 kg

DRUGS (1)
  1. SERTRALINE HYDROCHLORIDE [Suspect]
     Active Substance: SERTRALINE HYDROCHLORIDE
     Dosage: UNK
     Route: 048

REACTIONS (3)
  - Serotonin syndrome [Recovering/Resolving]
  - Toxicity to various agents [Unknown]
  - Accidental overdose [Unknown]
